FAERS Safety Report 7833429-X (Version None)
Quarter: 2011Q4

REPORT INFORMATION
  Report Type: 
  Country: None (occurrence: None)
  Receive Date: 20111024
  Receipt Date: 20111013
  Transmission Date: 20120403
  Serious: Yes (Hospitalization, Other)
  Sender: FDA-Public Use
  Company Number: US-ELI_LILLY_AND_COMPANY-US201108003939

PATIENT
  Age: 93 Year
  Sex: Female

DRUGS (14)
  1. NAMENDA [Concomitant]
     Dosage: 10 MG, BID
  2. LUTEIN [Concomitant]
  3. FORTEO [Suspect]
     Indication: OSTEOPOROSIS
     Dosage: 20 UG, QD
     Route: 065
     Dates: start: 20101201
  4. FISH OIL [Concomitant]
  5. LASIX [Concomitant]
     Dosage: UNK
  6. FERROUS SULFATE TAB [Concomitant]
  7. SODIUM CHLORIDE [Concomitant]
  8. ALBUTEROL [Concomitant]
  9. METOPROLOL TARTRATE [Concomitant]
     Dosage: 100 MG, BID
  10. ARICEPT [Concomitant]
     Dosage: 10 MG, UNK
  11. VITAMIN TAB [Concomitant]
  12. CALCIUM CARBONATE [Concomitant]
  13. CYMBALTA [Concomitant]
     Indication: DEPRESSION
     Dosage: 30 MG, BID
  14. AMIODARONE HCL [Concomitant]
     Dosage: 200 MG, QD

REACTIONS (10)
  - AGEUSIA [None]
  - CARDIAC FAILURE CONGESTIVE [None]
  - LUNG INFECTION [None]
  - PNEUMONIA [None]
  - FALL [None]
  - DEMENTIA ALZHEIMER'S TYPE [None]
  - CONTUSION [None]
  - FEELING ABNORMAL [None]
  - PULMONARY OEDEMA [None]
  - GAIT DISTURBANCE [None]
